FAERS Safety Report 15575385 (Version 1)
Quarter: 2018Q4

REPORT INFORMATION
  Report Type: Spontaneous
  Country: LV (occurrence: LV)
  Receive Date: 20181101
  Receipt Date: 20181101
  Transmission Date: 20190205
  Serious: Yes (Other)
  Sender: FDA-Public Use
  Company Number: PHHY2018LV090422

PATIENT
  Sex: Female

DRUGS (1)
  1. COSENTYX [Suspect]
     Active Substance: SECUKINUMAB
     Indication: PRODUCT USED FOR UNKNOWN INDICATION
     Dosage: UNK
     Route: 065
     Dates: start: 20180401

REACTIONS (7)
  - Papilloma [Unknown]
  - Anal inflammation [Unknown]
  - Stomatitis [Recovered/Resolved]
  - Oral herpes [Unknown]
  - Uveitis [Unknown]
  - Oral mucosal eruption [Unknown]
  - Ankylosing spondylitis [Unknown]
